FAERS Safety Report 24135897 (Version 1)
Quarter: 2024Q3

REPORT INFORMATION
  Report Type: Other
  Country: IT (occurrence: IT)
  Receive Date: 20240725
  Receipt Date: 20240725
  Transmission Date: 20241016
  Serious: Yes (Life-Threatening)
  Sender: B BRAUN
  Company Number: IT-B.Braun Medical Inc.-2159548

PATIENT
  Age: 68 Year
  Sex: Female

DRUGS (6)
  1. DEXTROSE\LIDOCAINE HYDROCHLORIDE [Suspect]
     Active Substance: DEXTROSE\LIDOCAINE HYDROCHLORIDE
     Indication: Arrhythmic storm
  2. AMIODARONE [Suspect]
     Active Substance: AMIODARONE
  3. METHYLPREDNISOLONE [Concomitant]
     Active Substance: METHYLPREDNISOLONE
  4. IPILIMUMAB [Concomitant]
     Active Substance: IPILIMUMAB
  5. NIVOLUMAB [Concomitant]
     Active Substance: NIVOLUMAB
  6. UNSPECIFIED INGREDIENT [Suspect]
     Active Substance: UNSPECIFIED INGREDIENT

REACTIONS (1)
  - Drug ineffective [Unknown]
